FAERS Safety Report 5802969-7 (Version None)
Quarter: 2008Q3

REPORT INFORMATION
  Report Type: 
  Country: None (occurrence: None)
  Receive Date: 20080703
  Receipt Date: 20080619
  Transmission Date: 20090109
  Serious: No
  Sender: FDA-Public Use
  Company Number: 2008S1011179

PATIENT
  Age: 53 Year
  Sex: Female

DRUGS (2)
  1. WARFARIN SODIUM [Suspect]
     Indication: AORTIC VALVE REPAIR
  2. WARFARIN SODIUM [Suspect]
     Indication: MITRAL VALVE REPAIR

REACTIONS (3)
  - GASTROINTESTINAL HAEMORRHAGE [None]
  - OVERDOSE [None]
  - SMALL INTESTINAL OBSTRUCTION [None]
